FAERS Safety Report 21869933 (Version 1)
Quarter: 2023Q1

REPORT INFORMATION
  Report Type: Report from Study
  Country: US (occurrence: US)
  Receive Date: 20230117
  Receipt Date: 20230117
  Transmission Date: 20230417
  Serious: No
  Sender: FDA-Public Use
  Company Number: US-ABBVIE-22K-163-4531059-00

PATIENT
  Age: 45 Year
  Sex: Female
  Weight: 86 kg

DRUGS (8)
  1. HUMIRA [Suspect]
     Active Substance: ADALIMUMAB
     Indication: Uveitis
     Dosage: CITRATE FREE?FORM STRENGTH: 40 MILLIGRAM
     Route: 058
     Dates: start: 20220823
  2. HUMIRA [Suspect]
     Active Substance: ADALIMUMAB
     Dosage: CITRATE FREE?DISCONTINUED IN 2022?FORM STRENGTH: 40 MILLIGRAM
     Route: 058
     Dates: start: 20220726
  3. HUMIRA [Suspect]
     Active Substance: ADALIMUMAB
     Dosage: CITRATE FREE?DISCONTINUED IN JUL 2022?FORM STRENGTH: 40 MILLIGRAM
     Route: 058
     Dates: start: 20220707
  4. HUMIRA [Suspect]
     Active Substance: ADALIMUMAB
     Dosage: CITRATE FREE?DISCONTINUED IN AUG 2022?FORM STRENGTH: 40 MILLIGRAM
     Route: 058
     Dates: start: 20220809
  5. ATORVASTATIN [Concomitant]
     Active Substance: ATORVASTATIN
     Indication: Retinal artery occlusion
     Route: 048
     Dates: start: 201909
  6. PFIZER-BIONTECH COVID-19 VACCINE [Concomitant]
     Active Substance: TOZINAMERAN
     Indication: COVID-19 immunisation
     Dosage: TIME INTERVAL: 1 TOTAL
     Route: 030
  7. ASPIRIN [Concomitant]
     Active Substance: ASPIRIN
     Indication: Retinal artery occlusion
     Route: 048
     Dates: start: 201909
  8. OMEPRAZOLE [Concomitant]
     Active Substance: OMEPRAZOLE
     Indication: Product used for unknown indication
     Route: 048
     Dates: start: 201611

REACTIONS (4)
  - Urinary tract infection [Recovered/Resolved]
  - Urinary tract infection [Recovered/Resolved]
  - Urinary tract infection [Recovered/Resolved]
  - Urinary tract infection [Recovered/Resolved]

NARRATIVE: CASE EVENT DATE: 20220720
